FAERS Safety Report 17526505 (Version 1)
Quarter: 2020Q1

REPORT INFORMATION
  Report Type: Spontaneous
  Country: US (occurrence: US)
  Receive Date: 20200311
  Receipt Date: 20200311
  Transmission Date: 20200409
  Serious: Yes (Other)
  Sender: FDA-Public Use
  Company Number: US-STRIDES ARCOLAB LIMITED-2020SP003093

PATIENT
  Age: 49 Year
  Sex: Male

DRUGS (1)
  1. METRONIDAZOLE. [Suspect]
     Active Substance: METRONIDAZOLE
     Indication: BRAIN ABSCESS
     Dosage: 530 GRAM
     Route: 065

REACTIONS (3)
  - Neuropathy peripheral [Not Recovered/Not Resolved]
  - Fall [Not Recovered/Not Resolved]
  - Neurotoxicity [Recovered/Resolved]
